FAERS Safety Report 15646762 (Version 5)
Quarter: 2019Q1

REPORT INFORMATION
  Report Type: Report from Study
  Country: US (occurrence: US)
  Receive Date: 20181122
  Receipt Date: 20190222
  Transmission Date: 20190417
  Serious: Yes (Hospitalization, Other)
  Sender: FDA-Public Use
  Company Number: US-ROCHE-2217790

PATIENT
  Age: 69 Year
  Sex: Female
  Weight: 98.6 kg

DRUGS (8)
  1. ATEZOLIZUMAB. [Suspect]
     Active Substance: ATEZOLIZUMAB
     Indication: BILE DUCT CANCER
     Dosage: ON 24/OCT/2018, THE SUBJECT RECEIVED HER LAST DOSE PRIOR TO EVENT ONSET OF ATEZOLIZUMAB AT 1200 MG.
     Route: 042
     Dates: start: 20181024, end: 20181024
  2. CISPLATIN. [Suspect]
     Active Substance: CISPLATIN
     Indication: GALLBLADDER CANCER
     Dosage: 50.7 MG/M2?ON 01/NOV/2018, LAST DOSE OF CISPLATIN PRIOR TO EVENT ONSET.
     Route: 042
     Dates: start: 20181025, end: 20181101
  3. ATEZOLIZUMAB. [Suspect]
     Active Substance: ATEZOLIZUMAB
     Indication: GALLBLADDER CANCER
  4. PEGPH20 [Suspect]
     Active Substance: PEGVORHYALURONIDASE ALFA
     Indication: BILE DUCT CANCER
  5. GEMCITABINE [Suspect]
     Active Substance: GEMCITABINE\GEMCITABINE HYDROCHLORIDE
     Indication: BILE DUCT CANCER
  6. CISPLATIN. [Suspect]
     Active Substance: CISPLATIN
     Indication: BILE DUCT CANCER
  7. PEGPH20 [Suspect]
     Active Substance: PEGVORHYALURONIDASE ALFA
     Indication: GALLBLADDER CANCER
     Dosage: ON 31/OCT/2018, LAST DOSE PRIOR TO EVENT ONSET
     Route: 042
     Dates: start: 20181024, end: 20181031
  8. GEMCITABINE [Suspect]
     Active Substance: GEMCITABINE\GEMCITABINE HYDROCHLORIDE
     Indication: GALLBLADDER CANCER
     Dosage: ON 01/NOV/2018, LAST DOSE OF GEMCITABINE PRIOR TO EVENT ONSET.
     Route: 042
     Dates: start: 20181025, end: 20181101

REACTIONS (5)
  - Platelet count decreased [Unknown]
  - Hepatitis [Unknown]
  - Neutropenia [Unknown]
  - Diarrhoea [Unknown]
  - Pancytopenia [Unknown]

NARRATIVE: CASE EVENT DATE: 20181107
